FAERS Safety Report 9916912 (Version 2)
Quarter: 2014Q1

REPORT INFORMATION
  Report Type: Spontaneous
  Country: IT (occurrence: IT)
  Receive Date: 20140221
  Receipt Date: 20140306
  Transmission Date: 20141002
  Serious: Yes (Life-Threatening)
  Sender: FDA-Public Use
  Company Number: IT-ABBVIE-14P-083-1204934-00

PATIENT
  Age: 64 Year
  Sex: Female

DRUGS (1)
  1. VECLAM [Suspect]
     Indication: COUGH
     Route: 048
     Dates: start: 20140210, end: 20140210

REACTIONS (1)
  - Anaphylactic shock [Unknown]
